FAERS Safety Report 10555274 (Version 5)
Quarter: 2015Q2

REPORT INFORMATION
  Report Type: Spontaneous
  Country: HU (occurrence: HU)
  Receive Date: 20141030
  Receipt Date: 20150520
  Transmission Date: 20150821
  Serious: Yes (Death, Other)
  Sender: FDA-Public Use
  Company Number: HU-ALEXION PHARMACEUTICALS INC.-A201404060

PATIENT

DRUGS (2)
  1. SOLIRIS [Suspect]
     Active Substance: ECULIZUMAB
     Indication: HAEMOLYTIC URAEMIC SYNDROME
     Dosage: 900 MG, QW
     Route: 042
     Dates: start: 20140808, end: 20140829
  2. SOLIRIS [Suspect]
     Active Substance: ECULIZUMAB
     Dosage: 1200 MG, Q2W
     Route: 042
     Dates: start: 20140905, end: 20141003

REACTIONS (2)
  - Metastases to liver [Unknown]
  - Adenocarcinoma gastric [Fatal]

NARRATIVE: CASE EVENT DATE: 201410
